FAERS Safety Report 22144158 (Version 2)
Quarter: 2023Q2

REPORT INFORMATION
  Report Type: Report from Study
  Country: US (occurrence: US)
  Receive Date: 20230327
  Receipt Date: 20230523
  Transmission Date: 20230721
  Serious: Yes (Hospitalization)
  Sender: FDA-Public Use
  Company Number: US-ABBVIE-4705127

PATIENT
  Age: 62 Year
  Sex: Female
  Weight: 59.874 kg

DRUGS (15)
  1. SKYRIZI [Suspect]
     Active Substance: RISANKIZUMAB-RZAA
     Indication: Psoriasis
     Route: 058
     Dates: start: 20221222
  2. TYLENOL [Suspect]
     Active Substance: ACETAMINOPHEN
     Indication: Pain in extremity
     Route: 065
  3. METOPROLOL [Concomitant]
     Active Substance: METOPROLOL
     Indication: Blood pressure measurement
  4. LASIX [Concomitant]
     Active Substance: FUROSEMIDE
     Indication: Renal disorder
  5. OMEPRAZOLE [Concomitant]
     Active Substance: OMEPRAZOLE
     Indication: Gastric disorder
  6. REQUIP [Concomitant]
     Active Substance: ROPINIROLE HYDROCHLORIDE
     Indication: Restless legs syndrome
  7. EFFIENT [Concomitant]
     Active Substance: PRASUGREL HYDROCHLORIDE
     Indication: Anticoagulant therapy
  8. JARDIANCE [Concomitant]
     Active Substance: EMPAGLIFLOZIN
     Indication: Proteinuria
  9. MAGNESIUM [Concomitant]
     Active Substance: MAGNESIUM
     Indication: Mineral supplementation
  10. CYMBALTA [Concomitant]
     Active Substance: DULOXETINE HYDROCHLORIDE
     Indication: Trigeminal neuralgia
  11. ALLEGRA [Concomitant]
     Active Substance: FEXOFENADINE HYDROCHLORIDE
     Indication: Pruritus
  12. TEGRETOL [Concomitant]
     Active Substance: CARBAMAZEPINE
     Indication: Trigeminal neuralgia
  13. VITAMIN D3 [Concomitant]
     Active Substance: CHOLECALCIFEROL
     Indication: Vitamin supplementation
  14. ASPIRIN [Concomitant]
     Active Substance: ASPIRIN
     Indication: Blood disorder
  15. CALCITRIOL [Concomitant]
     Active Substance: CALCITRIOL
     Indication: Parathyroid disorder

REACTIONS (9)
  - Urinary tract infection [Recovered/Resolved]
  - Procedural pain [Recovered/Resolved]
  - Rash pruritic [Recovering/Resolving]
  - Overdose [Unknown]
  - Cardiac failure congestive [Not Recovered/Not Resolved]
  - Peripheral artery bypass [Recovered/Resolved]
  - Confusional state [Recovered/Resolved]
  - Weight decreased [Recovered/Resolved]
  - Toxicity to various agents [Recovered/Resolved]

NARRATIVE: CASE EVENT DATE: 20230101
